FAERS Safety Report 6386928-4 (Version None)
Quarter: 2009Q4

REPORT INFORMATION
  Report Type: 
  Country: None (occurrence: None)
  Receive Date: 20091001
  Receipt Date: 20091001
  Transmission Date: 20100525
  Serious: No
  Sender: FDA-Public Use
  Company Number: None

PATIENT
  Age: 67 Year
  Sex: Male
  Weight: 92.08 kg

DRUGS (1)
  1. TESTOSTERONE [Suspect]
     Indication: HYPOGONADISM
     Dosage: 5 MG EVERY DAY TOP
     Route: 061
     Dates: start: 20090520, end: 20090824

REACTIONS (2)
  - APPLICATION SITE VESICLES [None]
  - RASH [None]
